FAERS Safety Report 8475846-3 (Version None)
Quarter: 2012Q2

REPORT INFORMATION
  Report Type: 
  Country: None (occurrence: None)
  Receive Date: 20120628
  Receipt Date: 20120618
  Transmission Date: 20120825
  Serious: Yes (Hospitalization, Other)
  Sender: FDA-Public Use
  Company Number: US-ABBOTT-12P-163-0933845-00

PATIENT
  Sex: Female
  Weight: 65.83 kg

DRUGS (9)
  1. CYMBALTA [Concomitant]
     Indication: PRODUCT USED FOR UNKNOWN INDICATION
  2. RISPERDAL [Concomitant]
     Indication: PRODUCT USED FOR UNKNOWN INDICATION
     Dosage: 2 MG AT BEDTIME, 1 MG EVERY MORNING
     Route: 048
  3. CLONAZEPAM [Concomitant]
     Indication: PRODUCT USED FOR UNKNOWN INDICATION
     Dosage: ONCE DAILY AT NIGHT
     Route: 048
  4. DEPAKOTE [Suspect]
     Indication: BIPOLAR DISORDER
     Dosage: ONE DAILY AT NIGHT
     Route: 048
     Dates: start: 20050101, end: 20090101
  5. DEPAKOTE [Suspect]
     Dates: start: 19990101
  6. LAMICTAL [Concomitant]
     Indication: PRODUCT USED FOR UNKNOWN INDICATION
     Dosage: 1/2 TABLET AT BEDTIME
  7. BENADRYL [Concomitant]
     Indication: PRODUCT USED FOR UNKNOWN INDICATION
     Route: 048
  8. TEGRETOL [Concomitant]
     Indication: PRODUCT USED FOR UNKNOWN INDICATION
     Route: 048
  9. NASAL SPRAY [Concomitant]
     Indication: PRODUCT USED FOR UNKNOWN INDICATION
     Route: 045

REACTIONS (30)
  - HEPATIC STEATOSIS [None]
  - SEXUAL RELATIONSHIP CHANGE [None]
  - IMPAIRED SELF-CARE [None]
  - CONFUSIONAL STATE [None]
  - PAIN IN EXTREMITY [None]
  - DIZZINESS [None]
  - OBESITY [None]
  - BODY MASS INDEX INCREASED [None]
  - BACK PAIN [None]
  - MENTAL DISORDER [None]
  - PSYCHOMOTOR HYPERACTIVITY [None]
  - WEIGHT INCREASED [None]
  - BEDRIDDEN [None]
  - PARTNER STRESS [None]
  - PANIC ATTACK [None]
  - NECK PAIN [None]
  - PARKINSON'S DISEASE [None]
  - TREMOR [None]
  - ANXIETY [None]
  - SPEECH DISORDER [None]
  - VICTIM OF SPOUSAL ABUSE [None]
  - BIPOLAR DISORDER [None]
  - ALOPECIA [None]
  - DIABETES MELLITUS [None]
  - WEIGHT LOSS POOR [None]
  - SELF INJURIOUS BEHAVIOUR [None]
  - FIBROMYALGIA [None]
  - NEOPLASM MALIGNANT [None]
  - INSOMNIA [None]
  - DEPRESSION [None]
